FAERS Safety Report 23419330 (Version 2)
Quarter: 2024Q1

REPORT INFORMATION
  Report Type: Report from Study
  Country: US (occurrence: US)
  Receive Date: 20240118
  Receipt Date: 20240125
  Transmission Date: 20240409
  Serious: Yes (Other)
  Sender: FDA-Public Use
  Company Number: US-ABBVIE-5593540

PATIENT
  Age: 50 Year
  Sex: Female

DRUGS (3)
  1. SKYRIZI [Suspect]
     Active Substance: RISANKIZUMAB-RZAA
     Indication: Psoriasis
     Dosage: WEEK 0, FORM STRENGTH: 150 MG
     Route: 058
     Dates: start: 20230727, end: 20230727
  2. SKYRIZI [Suspect]
     Active Substance: RISANKIZUMAB-RZAA
     Dosage: WEEK 4, FORM STRENGTH: 150 MG
     Route: 058
     Dates: start: 202308, end: 202308
  3. SKYRIZI [Suspect]
     Active Substance: RISANKIZUMAB-RZAA
     Dosage: FORM STRENGTH: 150 MG, FIRST ADMIN DATE: 2023
     Route: 058
     Dates: start: 20230727, end: 20231116

REACTIONS (3)
  - Spinal cord compression [Unknown]
  - Intervertebral disc protrusion [Not Recovered/Not Resolved]
  - Intervertebral disc protrusion [Unknown]

NARRATIVE: CASE EVENT DATE: 20231001
